FAERS Safety Report 8424343-X (Version None)
Quarter: 2012Q2

REPORT INFORMATION
  Report Type: 
  Country: None (occurrence: None)
  Receive Date: 20120608
  Receipt Date: 20110929
  Transmission Date: 20120825
  Serious: No
  Sender: FDA-Public Use
  Company Number: US-ASTRAZENECA-2011SE52085

PATIENT
  Age: 33 Year
  Sex: Female
  Weight: 50.8 kg

DRUGS (3)
  1. ASTEPRO [Concomitant]
     Indication: SEASONAL ALLERGY
  2. PULMICORT FLEXHALER [Suspect]
     Indication: ASTHMA
     Route: 055
  3. ALBUTEROL [Concomitant]
     Indication: ASTHMA

REACTIONS (2)
  - CHEST DISCOMFORT [None]
  - COUGH [None]
